FAERS Safety Report 14109658 (Version 2)
Quarter: 2018Q2

REPORT INFORMATION
  Report Type: Report from Study
  Country: FR (occurrence: FR)
  Receive Date: 20171020
  Receipt Date: 20180525
  Transmission Date: 20180711
  Serious: Yes (Hospitalization, Other)
  Sender: FDA-Public Use
  Company Number: FR-ROCHE-2006667

PATIENT
  Age: 80 Year
  Sex: Female

DRUGS (15)
  1. SMECTA [Concomitant]
     Active Substance: MONTMORILLONITE
  2. LASILIX [Concomitant]
     Active Substance: FUROSEMIDE
  3. BEVACIZUMAB. [Suspect]
     Active Substance: BEVACIZUMAB
     Indication: RECURRENT CANCER
     Dosage: ON DAY 1 AND 15 OF EVERY CYCLE?LAST DOSE BEFORE THE EVENT: 28/MAR/2017
     Route: 042
     Dates: start: 20170214, end: 20170411
  4. BEVACIZUMAB. [Suspect]
     Active Substance: BEVACIZUMAB
     Route: 042
     Dates: start: 20170425, end: 20170509
  5. ATARAX [Concomitant]
     Active Substance: HYDROXYZINE HYDROCHLORIDE
  6. PEGYLATED LIPOSOMAL DOXORUBICIN [Suspect]
     Active Substance: DOXORUBICIN
     Route: 042
     Dates: start: 20170425, end: 20170524
  7. BLINDED ATEZOLIZUMAB [Suspect]
     Active Substance: ATEZOLIZUMAB
     Indication: RECURRENT CANCER
     Dosage: ON DAY 1 AND 15 FOR 6 CYCLES EVERY 4 WEEKS ?LAST DOSE BEFORE THE EVENT: 28/MAR/2017
     Route: 042
     Dates: start: 20170214, end: 20170411
  8. BLINDED ATEZOLIZUMAB [Suspect]
     Active Substance: ATEZOLIZUMAB
     Route: 042
     Dates: start: 20170425, end: 20170509
  9. PEGYLATED LIPOSOMAL DOXORUBICIN [Suspect]
     Active Substance: DOXORUBICIN
     Indication: RECURRENT CANCER
     Dosage: LAST DOSE BEFORE THE EVENT: 14/MAR/2017?ON DAY 1 OF EVERY CYCLE?CAELYX
     Route: 042
     Dates: start: 20170214, end: 20170411
  10. ACEBUTOLOL [Concomitant]
     Active Substance: ACEBUTOLOL
  11. CARBOPLATIN. [Suspect]
     Active Substance: CARBOPLATIN
     Route: 042
     Dates: start: 20170425, end: 20170524
  12. LOPERAMIDE [Concomitant]
     Active Substance: LOPERAMIDE
  13. ALPRAZOLAM. [Concomitant]
     Active Substance: ALPRAZOLAM
  14. CARBOPLATIN. [Suspect]
     Active Substance: CARBOPLATIN
     Indication: RECURRENT CANCER
     Dosage: AREA UNDER CURVE (AUC) = 5, ON DAY 1 OF EVERY CYCLE?LAST DOSE BEFORE THE EVENT: 14/MAR/2017
     Route: 042
     Dates: start: 20170214, end: 20170411
  15. AMLOR [Concomitant]
     Active Substance: AMLODIPINE BESYLATE

REACTIONS (2)
  - Hypertension [Recovered/Resolved]
  - Acute kidney injury [Recovered/Resolved]

NARRATIVE: CASE EVENT DATE: 20170420
